FAERS Safety Report 9072640 (Version 1)
Quarter: 2013Q1

REPORT INFORMATION
  Report Type: Spontaneous
  Country: IT (occurrence: IT)
  Receive Date: 20130207
  Receipt Date: 20130207
  Transmission Date: 20140127
  Serious: Yes (Hospitalization)
  Sender: FDA-Public Use
  Company Number: IT-TEVA-384019ISR

PATIENT
  Age: 73 None
  Sex: Female

DRUGS (7)
  1. CARBOPLATIN [Suspect]
     Indication: OVARIAN CANCER
     Dosage: 350 MILLIGRAM DAILY; 350 MG CYCLICAL
     Route: 042
     Dates: start: 20121110, end: 20121205
  2. GEMCITABINE [Suspect]
     Indication: OVARIAN CANCER
     Dosage: 1500 MILLIGRAM DAILY; 1500 MG CYCLICAL
     Route: 042
     Dates: start: 20121109, end: 20130122
  3. MODURETIC [Concomitant]
     Dosage: HYDROCHLOROTIAZIDE 5MG/AMILORIDE 50MG
  4. CLEXANE [Concomitant]
  5. ZARELIS [Concomitant]
  6. TAVOR [Concomitant]
  7. LAEVOLAC [Concomitant]

REACTIONS (4)
  - Abdominal pain [Recovered/Resolved]
  - Hyperhidrosis [Recovered/Resolved]
  - Paraesthesia [Recovered/Resolved]
  - Vomiting [Recovered/Resolved]
